FAERS Safety Report 5838866-0 (Version None)
Quarter: 2008Q3

REPORT INFORMATION
  Report Type: 
  Country: None (occurrence: None)
  Receive Date: 20080804
  Receipt Date: 20080227
  Transmission Date: 20090109
  Serious: Yes (Hospitalization)
  Sender: FDA-Public Use
  Company Number: DSU-2008-00300

PATIENT
  Age: 65 Year
  Sex: Female
  Weight: 60.782 kg

DRUGS (8)
  1. BENICAR HCT [Suspect]
     Indication: DRUG USE FOR UNKNOWN INDICATION
     Dosage: 40/25 MG (QD), PER ORAL
     Route: 048
     Dates: start: 20071123, end: 20071127
  2. PFIZER STUDY PRODUCT AG-013, 736(3 MILLIGRAM) [Concomitant]
  3. TOPROL XL (METOPROLOL SUCCINATE) (50 MILLIGRAM) (METOPROLOL SUCCINATE) [Concomitant]
  4. LOVENOX (HEPARIN-FRACTION, SODIUM SALT) (60 MILLIGRAM) (HEPARIN-FRACTI [Concomitant]
  5. METHADONE (METHADONE) (20 MILLIGRAM) (METHADONE) [Concomitant]
  6. EFFEXOR (VENLAFAXINE HYDROCHLORIDE) (225 MILLIGRAM) (VENLAFAXINE HYDRO [Concomitant]
  7. MEGACE (MEGESTROL ACETATE) (400 MILLIGRAM) (MEGESTROL ACETATE) [Concomitant]
  8. ZOMETA (ZOLEDRONIC ACID) (4 MILLIGRAM) (ZOLEDRONIC ACID) [Concomitant]

REACTIONS (1)
  - RENAL FAILURE ACUTE [None]
